FAERS Safety Report 10494224 (Version 1)
Quarter: 2014Q4

REPORT INFORMATION
  Report Type: Spontaneous
  Country: US (occurrence: None)
  Receive Date: 20141002
  Receipt Date: 20141002
  Transmission Date: 20150528
  Serious: No
  Sender: FDA-Public Use
  Company Number: None

PATIENT
  Age: 18 Year
  Sex: Female
  Weight: 51.71 kg

DRUGS (1)
  1. CLINDAMICINA COMBINO PHARM [Suspect]
     Active Substance: CLINDAMYCIN PHOSPHATE
     Indication: WOUND
     Route: 048

REACTIONS (3)
  - Anger [None]
  - Arthropod sting [None]
  - Urticaria [None]

NARRATIVE: CASE EVENT DATE: 20140930
